FAERS Safety Report 5885242-0 (Version None)
Quarter: 2008Q3

REPORT INFORMATION
  Report Type: 
  Country: None (occurrence: None)
  Receive Date: 20080916
  Receipt Date: 20080904
  Transmission Date: 20090109
  Serious: Yes (Other)
  Sender: FDA-Public Use
  Company Number: AU-PFIZER INC-2008066497

PATIENT
  Sex: Female
  Weight: 63.5 kg

DRUGS (5)
  1. LYRICA [Suspect]
     Indication: NEURALGIA
     Route: 048
     Dates: start: 20080725, end: 20080726
  2. LYRICA [Suspect]
     Indication: HEADACHE
  3. CILICAINE VK [Concomitant]
     Route: 048
     Dates: start: 20080725
  4. METROGYL [Concomitant]
     Route: 048
     Dates: start: 20080725
  5. CODALGIN FORTE [Concomitant]
     Route: 048
     Dates: start: 20080721

REACTIONS (2)
  - DEPERSONALISATION [None]
  - DEREALISATION [None]
